FAERS Safety Report 5027670-1 (Version None)
Quarter: 2006Q2

REPORT INFORMATION
  Report Type: 
  Country: None (occurrence: None)
  Receive Date: 20060616
  Receipt Date: 20060413
  Transmission Date: 20061013
  Serious: Yes (Other)
  Sender: FDA-Public Use
  Company Number: US-BRISTOL-MYERS SQUIBB COMPANY-13346655

PATIENT
  Age: 49 Year
  Sex: Male
  Weight: 56 kg

DRUGS (4)
  1. SUSTIVA [Suspect]
     Dates: start: 20050101
  2. REYATAZ [Suspect]
     Indication: HIV INFECTION
     Dates: start: 20060101
  3. TRUVADA [Concomitant]
  4. NORVIR [Concomitant]

REACTIONS (5)
  - ABDOMINAL DISTENSION [None]
  - DYSPNOEA [None]
  - JOINT SWELLING [None]
  - LIVER DISORDER [None]
  - OEDEMA PERIPHERAL [None]
